FAERS Safety Report 9697246 (Version 2)
Quarter: 2013Q4

REPORT INFORMATION
  Report Type: Report from Study
  Country: DE (occurrence: DE)
  Receive Date: 20131120
  Receipt Date: 20131120
  Transmission Date: 20140711
  Serious: Yes (Hospitalization, Other)
  Sender: FDA-Public Use
  Company Number: DE-ROCHE-1290373

PATIENT
  Age: 52 Year
  Sex: Female

DRUGS (7)
  1. VEMURAFENIB [Suspect]
     Indication: METASTATIC MALIGNANT MELANOMA
     Dosage: MOST RECENT DOSE OF VEMURAFENIB PRIOR TO AE ONSET 04 SEP 2013
     Route: 048
     Dates: start: 20130813, end: 20130904
  2. VEMURAFENIB [Suspect]
     Route: 048
     Dates: start: 20130910, end: 20130930
  3. VEMURAFENIB [Suspect]
     Route: 048
     Dates: start: 20130930
  4. BISOPROLOL [Concomitant]
     Indication: HYPERTENSION
     Route: 048
  5. FLUOXETIN [Concomitant]
     Indication: HYPERTENSION
     Route: 048
  6. PANTOZOL (GERMANY) [Concomitant]
     Indication: HYPERTENSION
     Route: 048
  7. VALSARTAN [Concomitant]
     Indication: HYPERTENSION
     Dosage: 320/25 MG
     Route: 048

REACTIONS (7)
  - Rash [Recovered/Resolved]
  - Blood creatinine increased [Recovered/Resolved]
  - C-reactive protein increased [Recovered/Resolved]
  - Palmar-plantar erythrodysaesthesia syndrome [Recovered/Resolved]
  - Arthralgia [Not Recovered/Not Resolved]
  - Nausea [Not Recovered/Not Resolved]
  - Hyperaesthesia [Not Recovered/Not Resolved]
